FAERS Safety Report 9557599 (Version 2)
Quarter: 2014Q1

REPORT INFORMATION
  Report Type: Spontaneous
  Country: US (occurrence: US)
  Receive Date: 20130926
  Receipt Date: 20140106
  Transmission Date: 20141002
  Serious: Yes (Death)
  Sender: FDA-Public Use
  Company Number: US-GLAXOSMITHKLINE-A1042837A

PATIENT
  Age: 71 Year
  Sex: Female

DRUGS (1)
  1. ARIXTRA [Suspect]
     Indication: PANCREATIC CARCINOMA
     Dosage: 5MG UNKNOWN
     Route: 042
     Dates: start: 20130821

REACTIONS (3)
  - Sepsis [Fatal]
  - Pancytopenia [Fatal]
  - Pancreatic carcinoma metastatic [Fatal]
